FAERS Safety Report 6327736-X (Version None)
Quarter: 2009Q3

REPORT INFORMATION
  Report Type: 
  Country: None (occurrence: None)
  Receive Date: 20090824
  Receipt Date: 20090807
  Transmission Date: 20100115
  Serious: Yes (Hospitalization)
  Sender: FDA-Public Use
  Company Number: 2009BM000152

PATIENT
  Age: 57 Year
  Sex: Male
  Weight: 50 kg

DRUGS (15)
  1. KUVAN [Suspect]
     Indication: PHENYLKETONURIA
     Dosage: 1100 MG, QD, PO
     Route: 048
     Dates: start: 20081001, end: 20090702
  2. KUVAN [Suspect]
     Indication: PHENYLKETONURIA
     Dosage: 1100 MG, QD, PO
     Route: 048
     Dates: start: 20090706
  3. SYNTHROID [Concomitant]
  4. FLOMAX [Concomitant]
  5. CALCIFEROL [Concomitant]
  6. ARTANE [Concomitant]
  7. CALCIUM CARBONATE [Concomitant]
  8. PROTONIX [Concomitant]
  9. MEGESTROL ACETATE [Concomitant]
  10. TOPAMAX [Concomitant]
  11. LORAZEPAM [Concomitant]
  12. PROMETHAZINE DM [Concomitant]
  13. TYLENOL (CAPLET) [Concomitant]
  14. MULTI-VITAMINS [Concomitant]
  15. CALCITRIOL [Concomitant]

REACTIONS (12)
  - BLADDER DILATATION [None]
  - BLOOD SODIUM DECREASED [None]
  - DECREASED APPETITE [None]
  - HAEMATOCRIT DECREASED [None]
  - LETHARGY [None]
  - OBSTRUCTIVE UROPATHY [None]
  - PANCREATITIS [None]
  - UNRESPONSIVE TO STIMULI [None]
  - URINARY TRACT INFECTION [None]
  - VOMITING [None]
  - WEIGHT DECREASED [None]
  - WHITE BLOOD CELL COUNT DECREASED [None]
